FAERS Safety Report 16368380 (Version 1)
Quarter: 2019Q2

REPORT INFORMATION
  Report Type: Spontaneous
  Country: TH (occurrence: TH)
  Receive Date: 20190529
  Receipt Date: 20190529
  Transmission Date: 20190711
  Serious: Yes (Disabling, Other)
  Sender: FDA-Public Use
  Company Number: TH-APOPHARMA USA, INC.-2019AP015246

PATIENT
  Sex: Female
  Weight: 11.7 kg

DRUGS (6)
  1. ALKERAN [Suspect]
     Active Substance: MELPHALAN
     Dosage: 7.5 MG, Q.M.T.
     Route: 013
     Dates: start: 201308, end: 201308
  2. ALKERAN [Suspect]
     Active Substance: MELPHALAN
     Indication: RETINOBLASTOMA
     Dosage: 5 MG, Q.M.T.
     Route: 013
     Dates: start: 201305, end: 201305
  3. ALKERAN [Suspect]
     Active Substance: MELPHALAN
     Dosage: 7.5 MG, Q.M.T.
     Route: 013
     Dates: start: 201306, end: 201306
  4. ETOPOSIDE. [Concomitant]
     Active Substance: ETOPOSIDE
     Indication: RETINOBLASTOMA
     Dosage: 6 MG/KG, QD
     Route: 042
     Dates: start: 20130501, end: 20130502
  5. VINCRISTINE [Concomitant]
     Active Substance: VINCRISTINE
     Indication: RETINOBLASTOMA
     Dosage: 0.05 MG/KG, QD
     Route: 042
     Dates: start: 20130501, end: 20130501
  6. CARBOPLATIN. [Concomitant]
     Active Substance: CARBOPLATIN
     Indication: RETINOBLASTOMA
     Dosage: 14 MG/KG, QD
     Route: 042
     Dates: start: 20130501, end: 20130502

REACTIONS (1)
  - Vitreous haemorrhage [Recovered/Resolved with Sequelae]
